FAERS Safety Report 4332256-8 (Version None)
Quarter: 2004Q1

REPORT INFORMATION
  Report Type: 
  Country: None (occurrence: None)
  Receive Date: 20040331
  Receipt Date: 29940318
  Transmission Date: 20041129
  Serious: Yes (Other)
  Sender: FDA-Public Use
  Company Number: 2004204280PK

PATIENT
  Age: 7 Year
  Sex: Male
  Weight: 13 kg

DRUGS (1)
  1. GENOTROPIN [Suspect]
     Indication: HYPOPITUITARISM
     Dates: start: 20020601

REACTIONS (2)
  - DUCHENNE MUSCULAR DYSTROPHY [None]
  - HEPATITIS [None]
